FAERS Safety Report 6691490-2 (Version None)
Quarter: 2010Q2

REPORT INFORMATION
  Report Type: 
  Country: None (occurrence: None)
  Receive Date: 20100414
  Receipt Date: 20090430
  Transmission Date: 20101027
  Serious: Yes (Hospitalization)
  Sender: FDA-Public Use
  Company Number: 09-195

PATIENT
  Age: 63 Year
  Sex: Female

DRUGS (6)
  1. ALEVE [Suspect]
     Indication: DRUG USE FOR UNKNOWN INDICATION
     Dosage: 440 MG, DAILY, ORAL
     Route: 048
     Dates: start: 20090402
  2. SYNTHROID [Concomitant]
  3. PROTONIX [Concomitant]
  4. VITAMIN E [Concomitant]
  5. DITROPAN XL [Concomitant]
  6. ZOLOFT [Concomitant]

REACTIONS (4)
  - APHAGIA [None]
  - MUSCULOSKELETAL DISCOMFORT [None]
  - OROPHARYNGEAL DISCOMFORT [None]
  - TREMOR [None]
